FAERS Safety Report 13675498 (Version 1)
Quarter: 2017Q2

REPORT INFORMATION
  Report Type: Spontaneous
  Country: US (occurrence: US)
  Receive Date: 20170621
  Receipt Date: 20170621
  Transmission Date: 20170830
  Serious: Yes (Death)
  Sender: FDA-Public Use
  Company Number: US-PFIZER INC-2017265016

PATIENT
  Age: 67 Year
  Sex: Female

DRUGS (5)
  1. ZOSYN [Suspect]
     Active Substance: PIPERACILLIN SODIUM\TAZOBACTAM SODIUM
     Indication: SEPTIC SHOCK
     Dosage: UNK
     Route: 042
  2. VANCOMYCIN HCL [Suspect]
     Active Substance: VANCOMYCIN HYDROCHLORIDE
     Indication: SEPTIC SHOCK
     Dosage: UNK
     Route: 042
  3. CEFTAZIDIME. [Suspect]
     Active Substance: CEFTAZIDIME
     Indication: SEPSIS
     Dosage: UNK
  4. IMIPENEM [Suspect]
     Active Substance: IMIPENEM
     Indication: SEPSIS
     Dosage: UNK
  5. FLUCONAZOLE. [Suspect]
     Active Substance: FLUCONAZOLE
     Indication: SEPSIS
     Dosage: UNK

REACTIONS (2)
  - Drug ineffective [Fatal]
  - Drug resistance [Fatal]
